FAERS Safety Report 17830994 (Version 2)
Quarter: 2021Q1

REPORT INFORMATION
  Report Type: Spontaneous
  Country: US (occurrence: US)
  Receive Date: 20200527
  Receipt Date: 20210129
  Transmission Date: 20210419
  Serious: Yes (Death, Congenital Anomaly, Other)
  Sender: FDA-Public Use
  Company Number: US-PURDUE PHARMA-USA-2020-0152847

PATIENT
  Sex: Female

DRUGS (2)
  1. OXYCONTIN [Suspect]
     Active Substance: OXYCODONE HYDROCHLORIDE
     Indication: PRODUCT USED FOR UNKNOWN INDICATION
     Dosage: 80 MG FOUR TIMES A DAY FOR YEARS
     Route: 048
  2. OXYCODONE HCL TABLETS (RHODES 91?490) [Suspect]
     Active Substance: OXYCODONE HYDROCHLORIDE
     Indication: PRODUCT USED FOR UNKNOWN INDICATION
     Dosage: 80 MG FOUR TIMES A DAY FOR YEARS
     Route: 048

REACTIONS (8)
  - Respiratory disorder [Unknown]
  - Overdose [Unknown]
  - Drug dependence [Unknown]
  - Death [Fatal]
  - Developmental delay [Unknown]
  - Respiratory failure [Unknown]
  - Multiple congenital abnormalities [Unknown]
  - Acute kidney injury [Unknown]

NARRATIVE: CASE EVENT DATE: 20181111
